FAERS Safety Report 16112252 (Version 1)
Quarter: 2019Q1

REPORT INFORMATION
  Report Type: Spontaneous
  Country: CA (occurrence: CA)
  Receive Date: 20190325
  Receipt Date: 20190325
  Transmission Date: 20190418
  Serious: Yes (Hospitalization, Disabling)
  Sender: FDA-Public Use
  Company Number: CA-JNJFOC-20190326914

PATIENT
  Sex: Male

DRUGS (1)
  1. INVOKANA [Suspect]
     Active Substance: CANAGLIFLOZIN
     Indication: TYPE 2 DIABETES MELLITUS
     Route: 048

REACTIONS (6)
  - Hyponatraemia [Unknown]
  - Polydipsia [Unknown]
  - Computerised tomogram abnormal [Unknown]
  - Demyelination [Unknown]
  - Muscular weakness [Unknown]
  - Gait disturbance [Unknown]
